FAERS Safety Report 20633162 (Version 2)
Quarter: 2022Q2

REPORT INFORMATION
  Report Type: Spontaneous
  Country: US (occurrence: US)
  Receive Date: 20220324
  Receipt Date: 20220407
  Transmission Date: 20220721
  Serious: Yes (Hospitalization)
  Sender: FDA-Public Use
  Company Number: US-TEVA-2022-US-2019008

PATIENT
  Age: 47 Year
  Sex: Male

DRUGS (1)
  1. ZINC [Suspect]
     Active Substance: ZINC
     Indication: Hidradenitis
     Dosage: 100 MILLIGRAM DAILY; OVER-THE-COUNTER
     Route: 065

REACTIONS (2)
  - Copper deficiency [Recovering/Resolving]
  - Anaemia [Recovering/Resolving]
